FAERS Safety Report 9616300 (Version 2)
Quarter: 2013Q4

REPORT INFORMATION
  Report Type: Report from Study
  Country: KR (occurrence: KR)
  Receive Date: 20131011
  Receipt Date: 20131212
  Transmission Date: 20140711
  Serious: Yes (Death, Hospitalization)
  Sender: FDA-Public Use
  Company Number: KR-BAYER-2013-118298

PATIENT
  Age: 48 Year
  Sex: Male
  Weight: 60 kg

DRUGS (25)
  1. NEXAVAR [Suspect]
     Indication: HEPATOCELLULAR CARCINOMA
     Dosage: 800MG DAILY
     Route: 048
     Dates: start: 20120317, end: 20120710
  2. NEXAVAR [Suspect]
     Indication: HEPATOCELLULAR CARCINOMA
     Dosage: 600MG DAILY
     Route: 048
     Dates: start: 20120711, end: 20120816
  3. NEXAVAR [Suspect]
     Indication: HEPATOCELLULAR CARCINOMA
     Dosage: 800MG DAILY
     Route: 048
     Dates: start: 20120817, end: 20120906
  4. NEXAVAR [Suspect]
     Indication: HEPATOCELLULAR CARCINOMA
     Dosage: 800MG DAILY
     Route: 048
     Dates: start: 20120927, end: 20121013
  5. HEPAMERZ [ORNITHINE ASPARTATE] [Concomitant]
     Dosage: 2AMP DAILY
     Dates: start: 20120309, end: 20120320
  6. HEPAMERZ [ORNITHINE ASPARTATE] [Concomitant]
     Dosage: 2AMP DAILY
     Dates: start: 20120605, end: 20120616
  7. BARACLUDE [Concomitant]
     Dosage: 0.5MG DAILY
     Dates: start: 20120304
  8. CISPLATIN [Concomitant]
     Indication: CHEMOTHERAPY
     Dosage: 50MG/100ML-1VIAL DAILY
     Dates: start: 20120412, end: 20120412
  9. CISPLATIN [Concomitant]
     Indication: CHEMOTHERAPY
     Dosage: 10MG/20ML - 1VIAL DAILY
     Dates: start: 20120412, end: 20120412
  10. CISPLATIN [Concomitant]
     Indication: CHEMOTHERAPY
     Dosage: 50MG/100ML-1VIAL DAILY
     Dates: start: 20120629, end: 20120629
  11. CISPLATIN [Concomitant]
     Indication: CHEMOTHERAPY
     Dosage: 10MG/20ML - 1VIAL DAILY
     Dates: start: 20120629, end: 20120629
  12. CISPLATIN [Concomitant]
     Indication: CHEMOTHERAPY
     Dosage: 50MG/100ML-1VIAL DAILY
     Dates: start: 20120816, end: 20120816
  13. CISPLATIN [Concomitant]
     Indication: CHEMOTHERAPY
     Dosage: 10MG/20ML - 1VIAL DAILY
     Dates: start: 20120816, end: 20120816
  14. DEXTROSE [Concomitant]
     Dosage: 500ML (5%)
     Dates: start: 20120309, end: 20120320
  15. DEXTROSE [Concomitant]
     Dosage: 1000ML (5%)
     Dates: start: 20120412, end: 20120412
  16. DEXTROSE [Concomitant]
     Dosage: 500ML (10%)
     Dates: start: 20120605, end: 20120605
  17. DEXTROSE [Concomitant]
     Dosage: 1000ML (10%)
     Dates: start: 20120606, end: 20120606
  18. DEXTROSE [Concomitant]
     Dosage: 500ML (10%)
     Dates: start: 20120612, end: 20120613
  19. DEXTROSE [Concomitant]
     Dosage: 500ML (5%)
     Dates: start: 20120614, end: 20120616
  20. DEXTROSE [Concomitant]
  21. ATACAND [CANDESARTAN CILEXETIL,HYDROCHLOROTHIAZIDE] [Concomitant]
     Indication: BLOOD PRESSURE MANAGEMENT
     Dosage: 1TAB
     Dates: start: 20120708, end: 20120713
  22. NORVASC [Concomitant]
     Dosage: 1TAB
     Dates: start: 20120710, end: 20120713
  23. EXFORGE [Concomitant]
     Indication: BLOOD PRESSURE MANAGEMENT
     Dosage: 1TAB
     Dates: start: 20120713, end: 20120813
  24. LASIX [Concomitant]
     Dosage: 1MG DAILY
     Dates: start: 20120918
  25. ALDACTONE [SPIRONOLACTONE] [Concomitant]
     Dosage: 4TAB DAILY
     Dates: start: 20120819

REACTIONS (3)
  - Asthenia [Fatal]
  - Hypoglycaemia [Recovered/Resolved]
  - Asthenia [Recovered/Resolved]
